FAERS Safety Report 5680996-0 (Version None)
Quarter: 2008Q1

REPORT INFORMATION
  Report Type: 
  Country: None (occurrence: None)
  Receive Date: 20080326
  Receipt Date: 20080313
  Transmission Date: 20080703
  Serious: Yes (Life-Threatening)
  Sender: FDA-Public Use
  Company Number: CA-GENENTECH-258282

PATIENT
  Age: 13 Year
  Sex: Male
  Weight: 30.9 kg

DRUGS (1)
  1. NUTROPIN [Suspect]
     Indication: GROWTH HORMONE DEFICIENCY
     Dosage: 0.18 MG/KG, 1/WEEK
     Dates: start: 20021201

REACTIONS (1)
  - BRAIN NEOPLASM [None]
